FAERS Safety Report 19179685 (Version 2)
Quarter: 2021Q2

REPORT INFORMATION
  Report Type: Spontaneous
  Country: US (occurrence: US)
  Receive Date: 20210426
  Receipt Date: 20210520
  Transmission Date: 20210717
  Serious: No
  Sender: FDA-Public Use
  Company Number: US-PFIZER INC-2021331099

PATIENT
  Age: 52 Year
  Sex: Female
  Weight: 106.14 kg

DRUGS (1)
  1. DEPO?PROVERA [Suspect]
     Active Substance: MEDROXYPROGESTERONE ACETATE
     Indication: CONTRACEPTION
     Dosage: 104MG/0.65ML SUBQ EVERY THREE MONTHS
     Route: 058
     Dates: start: 2003

REACTIONS (5)
  - Device issue [Unknown]
  - Device leakage [Unknown]
  - Needle issue [Unknown]
  - Device use error [Unknown]
  - Drug dose omission by device [Unknown]

NARRATIVE: CASE EVENT DATE: 20210322
